FAERS Safety Report 7174871-2 (Version None)
Quarter: 2010Q4

REPORT INFORMATION
  Report Type: 
  Country: None (occurrence: None)
  Receive Date: 20101219
  Receipt Date: 20101214
  Transmission Date: 20110411
  Serious: Yes (Other)
  Sender: FDA-Public Use
  Company Number: US-RB-016729-10

PATIENT
  Age: 55 Year
  Sex: Female

DRUGS (5)
  1. SUBOXONE [Suspect]
     Indication: DRUG DEPENDENCE
     Route: 060
     Dates: start: 20101001, end: 20101129
  2. SUBOXONE [Suspect]
     Route: 060
     Dates: start: 20101130
  3. KEPPRA [Concomitant]
     Indication: CONVULSION
     Route: 065
     Dates: start: 20100801
  4. CLONAZEPAM [Concomitant]
     Indication: ANXIETY
     Route: 065
     Dates: start: 19980101
  5. AMBIEN [Concomitant]
     Indication: INSOMNIA
     Route: 065

REACTIONS (5)
  - ARTHRALGIA [None]
  - CONVULSION [None]
  - FATIGUE [None]
  - HYPERSOMNIA [None]
  - INTENTIONAL DRUG MISUSE [None]
